FAERS Safety Report 9096196 (Version 3)
Quarter: 2013Q3

REPORT INFORMATION
  Report Type: Report from Study
  Country: JP (occurrence: JP)
  Receive Date: 20130207
  Receipt Date: 20130923
  Transmission Date: 20140515
  Serious: No
  Sender: FDA-Public Use
  Company Number: JP-ASTRAZENECA-2013SE07767

PATIENT
  Age: 86 Year
  Sex: Female
  Weight: 54 kg

DRUGS (7)
  1. CRESTOR [Suspect]
     Indication: HYPERLIPIDAEMIA
     Route: 048
     Dates: start: 20101206, end: 20121125
  2. LANTUS [Concomitant]
     Indication: DIABETES MELLITUS
     Route: 058
     Dates: start: 20100524, end: 20110425
  3. BASEN OD [Concomitant]
     Indication: DIABETES MELLITUS
     Route: 048
     Dates: start: 20080423, end: 20101206
  4. BASEN OD [Concomitant]
     Indication: DIABETES MELLITUS
     Route: 048
     Dates: start: 20101206, end: 20120806
  5. IRBETAN [Concomitant]
     Indication: HYPERTENSION
     Route: 048
     Dates: start: 20091228, end: 20120806
  6. ATELEC [Concomitant]
     Indication: HYPERTENSION
     Route: 048
     Dates: start: 20100510, end: 20110620
  7. SELARA [Concomitant]
     Indication: HYPERTENSION
     Route: 048
     Dates: start: 20100524, end: 20120312

REACTIONS (1)
  - No adverse event [Unknown]
